FAERS Safety Report 8910831 (Version 6)
Quarter: 2013Q3

REPORT INFORMATION
  Report Type: Spontaneous
  Country: US (occurrence: US)
  Receive Date: 20121115
  Receipt Date: 20130722
  Transmission Date: 20140515
  Serious: No
  Sender: FDA-Public Use
  Company Number: US-JNJFOC-20121106134

PATIENT
  Age: 63 Year
  Sex: Female
  Weight: 63.5 kg

DRUGS (28)
  1. SIMPONI [Suspect]
     Indication: RHEUMATOID ARTHRITIS
     Route: 058
     Dates: start: 20121108
  2. SIMPONI [Suspect]
     Indication: RHEUMATOID ARTHRITIS
     Route: 058
     Dates: start: 20120913
  3. SIMPONI [Suspect]
     Indication: RHEUMATOID ARTHRITIS
     Route: 058
     Dates: start: 2011
  4. CELEBREX [Concomitant]
     Indication: OSTEOARTHRITIS
     Route: 048
     Dates: start: 20120806
  5. TRAMADOL [Concomitant]
     Indication: RHEUMATOID ARTHRITIS
     Dosage: 1-2 ORAL ONCE A DAY
     Route: 048
     Dates: start: 20121105
  6. TRAMADOL [Concomitant]
     Indication: OSTEOARTHRITIS
     Dosage: 1-2 ORAL ONCE A DAY
     Route: 048
     Dates: start: 20121105
  7. TRAMADOL [Concomitant]
     Indication: PAIN
     Dosage: 1-2 ORAL ONCE A DAY
     Route: 048
     Dates: start: 20121105
  8. PREDNISONE [Concomitant]
     Indication: RHEUMATOID ARTHRITIS
     Route: 048
  9. PREDNISONE [Concomitant]
     Indication: RHEUMATOID ARTHRITIS
     Route: 048
     Dates: start: 20121112
  10. LISINOPRIL [Concomitant]
     Indication: HYPERTENSION
     Route: 048
  11. LISINOPRIL [Concomitant]
     Indication: HYPERTENSION
     Route: 048
  12. LISINOPRIL [Concomitant]
     Indication: HEART VALVE INCOMPETENCE
     Route: 048
  13. LISINOPRIL [Concomitant]
     Indication: HEART VALVE INCOMPETENCE
     Route: 048
  14. METHOTREXATE [Concomitant]
     Indication: RHEUMATOID ARTHRITIS
     Route: 048
  15. METHOTREXATE [Concomitant]
     Indication: RHEUMATOID ARTHRITIS
     Route: 048
     Dates: start: 20121005
  16. ZOLOFT [Concomitant]
     Indication: DEPRESSION
     Route: 048
     Dates: start: 20120625
  17. CLONAZEPAM [Concomitant]
     Indication: PANIC ATTACK
     Route: 048
  18. LEUCOVORIN [Concomitant]
     Indication: ALOPECIA
  19. COD LIVER OIL [Concomitant]
     Route: 048
  20. VICODIN [Concomitant]
     Dosage: 5-500 MG ORAL AS NEEDED
     Route: 048
  21. LEUCOVORIN CALCIUM [Concomitant]
     Dosage: 1-2 ORAL ONCE A WEEK
     Route: 048
     Dates: start: 20111229
  22. CYCLOBENZAPRINE HCL [Concomitant]
     Dosage: 2 HRS BEFORE BEDTIME
     Route: 048
     Dates: start: 20110718
  23. KLONOPIN [Concomitant]
     Dosage: 1-2 TABLET AT BEDTIME
     Route: 048
     Dates: start: 20120710
  24. ASPIRIN [Concomitant]
     Route: 065
  25. FOLIC ACID [Concomitant]
     Route: 065
  26. OXYCONTIN [Concomitant]
     Route: 065
  27. TRAMADOL HCL [Concomitant]
     Dosage: 1-2 EVERY 4-6 HOURS AS NEEDED
     Route: 065
  28. ZOSTAVAX [Concomitant]
     Dosage: 19400 UNIT/0.65 ML
     Route: 065

REACTIONS (2)
  - Rash [Recovered/Resolved]
  - Pruritus [Recovered/Resolved]
